FAERS Safety Report 16909697 (Version 2)
Quarter: 2019Q4

REPORT INFORMATION
  Report Type: Report from Study
  Country: US (occurrence: US)
  Receive Date: 20191011
  Receipt Date: 20191022
  Transmission Date: 20200122
  Serious: Yes (Disabling)
  Sender: FDA-Public Use
  Company Number: US-ACTELION-A-NJ2019-196721

PATIENT
  Age: 62 Year
  Sex: Male

DRUGS (1)
  1. OPSUMIT [Suspect]
     Active Substance: MACITENTAN
     Indication: PRODUCT USED FOR UNKNOWN INDICATION
     Dosage: 10 MG, QD
     Route: 048
     Dates: start: 20190211

REACTIONS (4)
  - Impaired driving ability [Unknown]
  - Hypotension [Unknown]
  - Loss of consciousness [Unknown]
  - Hypertension [Unknown]

NARRATIVE: CASE EVENT DATE: 20190926
